FAERS Safety Report 16029043 (Version 2)
Quarter: 2019Q4

REPORT INFORMATION
  Report Type: Report from Study
  Country: JP (occurrence: JP)
  Receive Date: 20190304
  Receipt Date: 20191004
  Transmission Date: 20200122
  Serious: Yes (Death)
  Sender: FDA-Public Use
  Company Number: JP-ROCHE-2274395

PATIENT
  Age: 68 Year
  Sex: Female
  Weight: 36 kg

DRUGS (3)
  1. NEORESTAR [Concomitant]
     Active Substance: CHLORPHENIRAMINE MALEATE
     Indication: PREMEDICATION
     Route: 042
     Dates: start: 20140826, end: 20140826
  2. RITUXIMAB. [Suspect]
     Active Substance: RITUXIMAB
     Indication: TRANSPLANT REJECTION
     Route: 041
     Dates: start: 20140826, end: 20140826
  3. BRUFEN [IBUPROFEN] [Concomitant]
     Active Substance: IBUPROFEN
     Indication: PREMEDICATION
     Route: 048
     Dates: start: 20140826, end: 20140826

REACTIONS (2)
  - Disease progression [Fatal]
  - Off label use [Fatal]

NARRATIVE: CASE EVENT DATE: 20151009
